FAERS Safety Report 9991668 (Version 1)
Quarter: 2014Q1

REPORT INFORMATION
  Report Type: Spontaneous
  Country: FR (occurrence: FR)
  Receive Date: 20140310
  Receipt Date: 20140310
  Transmission Date: 20141002
  Serious: Yes (Hospitalization)
  Sender: FDA-Public Use
  Company Number: FR-MERCK-1403FRA002756

PATIENT
  Sex: Female

DRUGS (6)
  1. SINGULAIR [Suspect]
     Route: 048
  2. STAGID [Suspect]
     Route: 048
  3. OGASTORO [Suspect]
     Dosage: UNK MG, UNK
     Route: 048
  4. SERETIDE [Suspect]
     Route: 055
  5. TERBUTALINE SULFATE [Suspect]
     Route: 055
  6. BUDESONIDE [Suspect]
     Route: 055

REACTIONS (1)
  - Macroglossia [Recovered/Resolved]
